FAERS Safety Report 7934655-1 (Version None)
Quarter: 2011Q4

REPORT INFORMATION
  Report Type: 
  Country: None (occurrence: None)
  Receive Date: 20111117
  Receipt Date: 20111102
  Transmission Date: 20120403
  Serious: Yes (Other)
  Sender: FDA-Public Use
  Company Number: 2011SP051949

PATIENT
  Age: 61 Year
  Sex: Male

DRUGS (4)
  1. PROPRANOLOL [Concomitant]
  2. FAMOTIDINE [Concomitant]
  3. TEMODAL [Suspect]
     Indication: GLIOBLASTOMA
     Dosage: 75 MG/M2; QD; PO, 150 MG/M2; QD; PO, 200 MG/M2; QD; PO
     Route: 048
     Dates: start: 20090301
  4. VALPROIC ACID [Concomitant]

REACTIONS (11)
  - HEPATITIS B DNA INCREASED [None]
  - IMMUNOSUPPRESSION [None]
  - ALPHA 1 FOETOPROTEIN INCREASED [None]
  - ALANINE AMINOTRANSFERASE INCREASED [None]
  - PROTEIN INDUCED BY VITAMIN K ABSENCE OR ANTAGONIST II INCREASED [None]
  - WHITE BLOOD CELL COUNT DECREASED [None]
  - HEPATIC MASS [None]
  - HEPATIC NEOPLASM MALIGNANT [None]
  - HEPATITIS ACUTE [None]
  - ASPARTATE AMINOTRANSFERASE INCREASED [None]
  - LYMPHOCYTE COUNT DECREASED [None]
